FAERS Safety Report 5525218-6 (Version None)
Quarter: 2007Q4

REPORT INFORMATION
  Report Type: 
  Country: None (occurrence: None)
  Receive Date: 20071126
  Receipt Date: 20071116
  Transmission Date: 20080405
  Serious: Yes (Hospitalization)
  Sender: FDA-Public Use
  Company Number: NL-BRISTOL-MYERS SQUIBB COMPANY-13990064

PATIENT
  Age: 55 Year
  Sex: Female

DRUGS (4)
  1. GLUCOPHAGE [Suspect]
     Indication: DIABETES MELLITUS
     Dosage: DAILY DOSE INCREASED FROM 1X500 TO 3X1000 WITHIN 4 MONTHS
     Route: 048
     Dates: start: 20061201, end: 20070326
  2. DYTENZIDE [Suspect]
     Indication: HYPERTENSION
     Dosage: 1 DOSAGE FORM = 50MG/4MG, 03-NOV-06 TO 02-FEB-07, 09-MAR-07 TO 26-MAR-07
     Route: 048
     Dates: start: 20070309, end: 20070326
  3. NOVATEC [Suspect]
     Indication: HYPERTENSION
     Route: 048
     Dates: start: 20060202, end: 20060326
  4. SIMVASTATIN [Concomitant]
     Route: 048
     Dates: start: 20061206, end: 20070323

REACTIONS (1)
  - RENAL FAILURE [None]
